FAERS Safety Report 8539942-4 (Version None)
Quarter: 2012Q3

REPORT INFORMATION
  Report Type: 
  Country: None (occurrence: None)
  Receive Date: 20120726
  Receipt Date: 20120723
  Transmission Date: 20120928
  Serious: Yes (Other)
  Sender: FDA-Public Use
  Company Number: US-PFIZER INC-2012126355

PATIENT
  Sex: Female

DRUGS (3)
  1. NORVASC [Concomitant]
     Dosage: 10 MG, UNK
  2. LIPITOR [Suspect]
     Dosage: 10 MG, UNK
  3. PROTONIX [Concomitant]
     Dosage: 40 MG, UNK

REACTIONS (4)
  - WEIGHT INCREASED [None]
  - ABDOMINAL PAIN UPPER [None]
  - HERNIA [None]
  - ABDOMINAL DISTENSION [None]
